FAERS Safety Report 20207878 (Version 1)
Quarter: 2021Q4

REPORT INFORMATION
  Report Type: Spontaneous
  Country: US (occurrence: None)
  Receive Date: 20211220
  Receipt Date: 20211220
  Transmission Date: 20220303
  Serious: Yes (Hospitalization)
  Sender: FDA-Public Use
  Company Number: None

PATIENT
  Sex: Female

DRUGS (12)
  1. AMBRISENTAN [Suspect]
     Active Substance: AMBRISENTAN
     Indication: Pulmonary hypertension
     Dosage: FREQUENCY : DAILY;?
     Route: 048
  2. TADALAFIL [Suspect]
     Active Substance: TADALAFIL
     Indication: Pulmonary hypertension
  3. COREG [Concomitant]
     Active Substance: CARVEDILOL
  4. POTASSIUM CHLORIDE [Concomitant]
     Active Substance: POTASSIUM CHLORIDE
  5. BUMETANIDE [Concomitant]
     Active Substance: BUMETANIDE
  6. ADVAIR DISKUS [Concomitant]
     Active Substance: FLUTICASONE PROPIONATE\SALMETEROL XINAFOATE
  7. VENTOLIN HFA [Concomitant]
     Active Substance: ALBUTEROL SULFATE
  8. MOTRIN [Concomitant]
     Active Substance: IBUPROFEN
  9. LETAIRIS [Concomitant]
     Active Substance: AMBRISENTAN
  10. ADCIRCA [Concomitant]
     Active Substance: TADALAFIL
  11. LORAZEPAM [Concomitant]
     Active Substance: LORAZEPAM
  12. SERTRALINE HYDROCHLORIDE [Concomitant]
     Active Substance: SERTRALINE HYDROCHLORIDE

REACTIONS (2)
  - Hospitalisation [None]
  - Therapy interrupted [None]
